FAERS Safety Report 4665554-9 (Version None)
Quarter: 2005Q2

REPORT INFORMATION
  Report Type: 
  Country: None (occurrence: None)
  Receive Date: 20050517
  Receipt Date: 20050504
  Transmission Date: 20051028
  Serious: Yes (Hospitalization, Disabling, Other)
  Sender: FDA-Public Use
  Company Number: 2004012957

PATIENT
  Age: 49 Year
  Sex: Male
  Weight: 85.2762 kg

DRUGS (1)
  1. NEURONTIN [Suspect]
     Indication: BIPOLAR DISORDER
     Dosage: 600 MG (300 MG, 2 IN 1 D)
     Dates: start: 20010112

REACTIONS (8)
  - ACCIDENT [None]
  - DEFORMITY [None]
  - FACE INJURY [None]
  - GUN SHOT WOUND [None]
  - MENTAL DISORDER [None]
  - PAIN [None]
  - POLYTRAUMATISM [None]
  - SUICIDE ATTEMPT [None]
